FAERS Safety Report 15201325 (Version 1)
Quarter: 2018Q3

REPORT INFORMATION
  Report Type: Spontaneous
  Country: US (occurrence: US)
  Receive Date: 20180726
  Receipt Date: 20180726
  Transmission Date: 20181010
  Serious: No
  Sender: FDA-Public Use
  Company Number: US-SHIRE-US201825293

PATIENT
  Age: 32 Year
  Sex: Female
  Weight: 63.49 kg

DRUGS (5)
  1. TRILEPTIN [Concomitant]
     Active Substance: OXCARBAZEPINE
     Indication: SLEEP TERROR
  2. LIPITOR [Concomitant]
     Active Substance: ATORVASTATIN CALCIUM
     Indication: BLOOD CHOLESTEROL
  3. CLONIDINE. [Concomitant]
     Active Substance: CLONIDINE
     Indication: NIGHTMARE
  4. VYVANSE [Suspect]
     Active Substance: LISDEXAMFETAMINE DIMESYLATE
     Indication: BINGE EATING
     Dosage: 50 MG, 1X/DAY:QD
     Route: 048
     Dates: start: 201707
  5. VALTREX [Concomitant]
     Active Substance: VALACYCLOVIR HYDROCHLORIDE
     Indication: HERPES SIMPLEX

REACTIONS (4)
  - Malaise [Not Recovered/Not Resolved]
  - Product physical consistency issue [Unknown]
  - Feeling abnormal [Not Recovered/Not Resolved]
  - Product physical issue [Unknown]

NARRATIVE: CASE EVENT DATE: 201806
